FAERS Safety Report 5474056-1 (Version None)
Quarter: 2007Q4

REPORT INFORMATION
  Report Type: 
  Country: None (occurrence: None)
  Receive Date: 20071002
  Receipt Date: 20070925
  Transmission Date: 20080405
  Serious: Yes (Death, Other)
  Sender: FDA-Public Use
  Company Number: PHBS2007JP13313

PATIENT
  Age: 72 Year
  Sex: Male
  Weight: 64 kg

DRUGS (3)
  1. ZOMETA [Suspect]
     Indication: METASTASES TO BONE
     Dosage: 4 MG, UNK
     Route: 042
     Dates: start: 20070727
  2. ZOLADEX [Concomitant]
     Dosage: 3.6 MG/DAY
     Route: 042
  3. RINDERON [Concomitant]
     Dosage: 0.5 MG/DAY
     Route: 048

REACTIONS (14)
  - ANURIA [None]
  - BLOOD CREATININE INCREASED [None]
  - BLOOD POTASSIUM INCREASED [None]
  - BLOOD UREA INCREASED [None]
  - DISEASE PROGRESSION [None]
  - HAEMATOCRIT DECREASED [None]
  - HAEMOGLOBIN DECREASED [None]
  - HYPOCALCAEMIA [None]
  - METASTASES TO LYMPH NODES [None]
  - RED BLOOD CELL COUNT DECREASED [None]
  - RENAL FAILURE [None]
  - SEPSIS [None]
  - SHOCK [None]
  - STENT PLACEMENT [None]
